FAERS Safety Report 24375449 (Version 1)
Quarter: 2024Q3

REPORT INFORMATION
  Report Type: Report from Study
  Country: IE (occurrence: IE)
  Receive Date: 20240928
  Receipt Date: 20240928
  Transmission Date: 20241016
  Serious: Yes (Death)
  Sender: JOHNSON AND JOHNSON
  Company Number: IE-JNJFOC-20230120579

PATIENT
  Age: 9 Decade
  Sex: Male

DRUGS (5)
  1. ZYTIGA [Suspect]
     Active Substance: ABIRATERONE ACETATE
     Indication: Prostate cancer metastatic
     Route: 048
     Dates: start: 20220826
  2. PREDNISOLONE [Concomitant]
     Active Substance: PREDNISOLONE
     Route: 050
  3. PREDNISOLONE [Concomitant]
     Active Substance: PREDNISOLONE
     Route: 050
  4. BUTRANS [Concomitant]
     Active Substance: BUPRENORPHINE
     Route: 050
  5. OLMESAR [Concomitant]
     Route: 050

REACTIONS (5)
  - Death [Fatal]
  - Joint swelling [Not Recovered/Not Resolved]
  - Dyspnoea [Recovered/Resolved]
  - Arthritis [Unknown]
  - Blood pressure decreased [Not Recovered/Not Resolved]

NARRATIVE: CASE EVENT DATE: 20230101
